FAERS Safety Report 21354575 (Version 1)
Quarter: 2022Q3

REPORT INFORMATION
  Report Type: Report from Study
  Country: DE (occurrence: None)
  Receive Date: 20220920
  Receipt Date: 20220920
  Transmission Date: 20221026
  Serious: Yes (Hospitalization)
  Sender: FDA-Public Use
  Company Number: DE-ROCHE-3150150

PATIENT
  Age: 67 Year
  Sex: Female
  Weight: 53 kg

DRUGS (24)
  1. ATEZOLIZUMAB [Suspect]
     Active Substance: ATEZOLIZUMAB
     Indication: Triple negative breast cancer
     Dosage: SHE RECEIVED LAST DOSE OF ATEZOLIZUMAB PRIOR TO SAE ON 22/JUN/2022, 03/AUG/2022
     Route: 041
     Dates: start: 20220330
  2. PACLITAXEL [Suspect]
     Active Substance: PACLITAXEL
     Indication: Triple negative breast cancer
     Dosage: SHE RECEIVED MOST RECENT DOSE OF PACLITAXEL PRIOR TO SAE ON 15/JUN/2022
     Route: 042
     Dates: start: 20220330
  3. CARBOPLATIN [Suspect]
     Active Substance: CARBOPLATIN
     Indication: Triple negative breast cancer
     Dosage: SHE RECEIVED MOST RECENT DOSE OF CARBOPLATIN PRIOR TO SAE ON 18/MAY/2022
     Route: 042
     Dates: start: 20220330
  4. EPIRUBICIN [Suspect]
     Active Substance: EPIRUBICIN
     Indication: Triple negative breast cancer
     Dosage: SHE RECEIVED MOST RECENT DOSE OF EPIRUBICIN PRIOR TO SAE ON 22/JUN/2022, 03/AUG/2022
     Route: 042
     Dates: start: 20220622
  5. CYCLOPHOSPHAMIDE [Suspect]
     Active Substance: CYCLOPHOSPHAMIDE
     Indication: Triple negative breast cancer
     Dosage: SHE RECEIVED MOST RECENT DOSE OF CYCLOPHOSPHAMID PRIOR TO SAE ON 22/JUN/2022, 03/AUG/2022
     Route: 042
     Dates: start: 20220622
  6. BISOPROLOL [Concomitant]
     Active Substance: BISOPROLOL
     Dates: start: 20200101
  7. LEVOTHYROXINE SODIUM [Concomitant]
     Active Substance: LEVOTHYROXINE SODIUM
     Dates: start: 20191201, end: 20220406
  8. LEVOTHYROXINE SODIUM [Concomitant]
     Active Substance: LEVOTHYROXINE SODIUM
     Dates: start: 20220407, end: 20220428
  9. LEVOTHYROXINE SODIUM [Concomitant]
     Active Substance: LEVOTHYROXINE SODIUM
     Dates: start: 20220429, end: 20220511
  10. LEVOTHYROXINE SODIUM [Concomitant]
     Active Substance: LEVOTHYROXINE SODIUM
     Dates: start: 20220512
  11. NEUPOGEN [Concomitant]
     Active Substance: FILGRASTIM
     Dosage: 30 MIO.E
     Dates: start: 20220428
  12. NEUPOGEN [Concomitant]
     Active Substance: FILGRASTIM
     Dates: start: 20220810, end: 20220818
  13. NEUPOGEN [Concomitant]
     Active Substance: FILGRASTIM
     Dates: start: 20220720, end: 20220722
  14. MOMETASONE FUROATE [Concomitant]
     Active Substance: MOMETASONE FUROATE
     Dosage: ON DEMAND
     Dates: start: 20220421, end: 20220426
  15. MOMETASONE FUROATE [Concomitant]
     Active Substance: MOMETASONE FUROATE
     Dosage: ON DEMAND
     Dates: start: 20220512, end: 20220516
  16. DEXAMETHASONE [Concomitant]
     Active Substance: DEXAMETHASONE
     Dates: start: 20220318, end: 20220803
  17. CLEMASTINE [Concomitant]
     Active Substance: CLEMASTINE
     Dates: start: 20220318, end: 20220803
  18. RANITIDINE [Concomitant]
     Active Substance: RANITIDINE
     Dates: start: 20220318, end: 20220803
  19. GRANISETRON [Concomitant]
     Active Substance: GRANISETRON
     Dates: start: 20220318, end: 20220803
  20. CLEMASTINE FUMARATE [Concomitant]
     Active Substance: CLEMASTINE FUMARATE
     Dates: start: 20220601, end: 20220615
  21. LIPEGFILGRASTIM [Concomitant]
     Active Substance: LIPEGFILGRASTIM
     Dates: start: 20220714, end: 20220714
  22. ONDANSETRON [Concomitant]
     Active Substance: ONDANSETRON
     Dates: start: 20220801, end: 20220812
  23. MOVICOL [Concomitant]
     Active Substance: POLYETHYLENE GLYCOL 3350\POTASSIUM CHLORIDE\SODIUM BICARBONATE\SODIUM CHLORIDE
     Dates: start: 20220718
  24. DIMENHYDRINATE [Concomitant]
     Active Substance: DIMENHYDRINATE
     Dates: start: 20220804, end: 20220811

REACTIONS (1)
  - Pancytopenia [Recovered/Resolved]

NARRATIVE: CASE EVENT DATE: 20220629
